FAERS Safety Report 14197350 (Version 1)
Quarter: 2017Q4

REPORT INFORMATION
  Report Type: Spontaneous
  Country: US (occurrence: US)
  Receive Date: 20171116
  Receipt Date: 20171116
  Transmission Date: 20180321
  Serious: No
  Sender: FDA-Public Use
  Company Number: US-RADIUS HEALTH INC.-2017US000191

PATIENT

DRUGS (1)
  1. TYMLOS [Suspect]
     Active Substance: ABALOPARATIDE
     Indication: OSTEOPOROSIS POSTMENOPAUSAL
     Dosage: 80 MCG, DAILY
     Route: 058
     Dates: start: 20170626, end: 20170630

REACTIONS (7)
  - Muscular weakness [Unknown]
  - Pain [Unknown]
  - Fibromyalgia [Unknown]
  - Myalgia [Unknown]
  - Limb discomfort [Unknown]
  - Vomiting [Unknown]
  - Nausea [Unknown]
